FAERS Safety Report 21594397 (Version 2)
Quarter: 2022Q4

REPORT INFORMATION
  Report Type: Other
  Country: US (occurrence: None)
  Receive Date: 20221115
  Receipt Date: 20221117
  Transmission Date: 20230112
  Serious: Yes (Hospitalization)
  Sender: FDA-Public Use
  Company Number: US-ROCHE-3217271

PATIENT
  Age: 60 Year
  Sex: Female

DRUGS (6)
  1. OCREVUS [Suspect]
     Active Substance: OCRELIZUMAB
     Indication: Relapsing multiple sclerosis
     Dosage: ONGOING: YES, INFUSE 600MG INTRAVENOUSLY EVERY 6 MONTHS, LAST TREATMENT DATE: 20/AUG/2020, 16/SEP/20
     Route: 042
     Dates: start: 20180809
  2. BACLOFEN [Concomitant]
     Active Substance: BACLOFEN
  3. MIRALAX [Concomitant]
     Active Substance: POLYETHYLENE GLYCOL 3350
  4. SERTRALINE [Concomitant]
     Active Substance: SERTRALINE HYDROCHLORIDE
  5. TIZANIDINE [Concomitant]
     Active Substance: TIZANIDINE
  6. VITAMIN D3 [Concomitant]
     Active Substance: CHOLECALCIFEROL

REACTIONS (1)
  - Pneumonia [Recovered/Resolved]
